FAERS Safety Report 7609502-8 (Version None)
Quarter: 2011Q3

REPORT INFORMATION
  Report Type: 
  Country: None (occurrence: None)
  Receive Date: 20110714
  Receipt Date: 20110706
  Transmission Date: 20111222
  Serious: Yes (Death, Hospitalization)
  Sender: FDA-Public Use
  Company Number: PHHY2011FR60485

PATIENT
  Sex: Female

DRUGS (14)
  1. ESIDRIX [Suspect]
     Dosage: 25 MG, QD
     Dates: end: 20110505
  2. LASIX [Suspect]
     Dosage: 1 G, UNK
     Dates: start: 20110510
  3. ALDACTONE [Suspect]
     Dosage: UNK
     Dates: end: 20110505
  4. TADALAFIL [Concomitant]
     Dosage: 20 MG, UNK
  5. ALPRAZOLAM [Suspect]
     Dosage: 0.5 MG, BID
     Dates: end: 20110505
  6. POTASSIUM CHLORIDE [Suspect]
     Dosage: 5 CAPS IN THE MORNING - 4 CAPS AT LAUNCH - 5 CAPS AT THE END OF THE AFTERNOON - 4 CAPS AT NIGHT,
     Dates: end: 20110505
  7. TRACLEER [Concomitant]
     Dosage: 125 MG, UNK
  8. LEVOTHYROXINE SODIUM [Concomitant]
     Dosage: 50 UG, UNK
  9. PROZAC [Concomitant]
     Dosage: UNK UKN, UNK
  10. PANTOPRAZOLE [Concomitant]
     Dosage: 40 MG, UNK
  11. PREVISCAN [Concomitant]
     Dosage: 20 MG, UNK
  12. LASIX [Suspect]
     Dosage: 500 MG, BID 2SDO
     Dates: end: 20110505
  13. CORDARONE [Concomitant]
     Dosage: 200 MG, UNK
  14. VENTAVIS [Concomitant]
     Dosage: 10 UG/ML, UNK

REACTIONS (10)
  - PULMONARY ARTERIAL HYPERTENSION [None]
  - CARDIAC FAILURE [None]
  - DEHYDRATION [None]
  - SHOCK [None]
  - BLOOD CREATININE INCREASED [None]
  - HYPOXIA [None]
  - ANURIA [None]
  - RENAL FAILURE ACUTE [None]
  - HYPERKALAEMIA [None]
  - DIARRHOEA [None]
